FAERS Safety Report 23924676 (Version 1)
Quarter: 2024Q2

REPORT INFORMATION
  Report Type: Spontaneous
  Country: DK (occurrence: DK)
  Receive Date: 20240531
  Receipt Date: 20240531
  Transmission Date: 20240716
  Serious: Yes (Hospitalization)
  Sender: FDA-Public Use
  Company Number: None

PATIENT
  Age: 57 Year
  Sex: Female

DRUGS (6)
  1. TOCILIZUMAB [Suspect]
     Active Substance: TOCILIZUMAB
     Indication: Arthritis
     Route: 058
     Dates: start: 202311
  2. VAGIFEM [Concomitant]
     Active Substance: ESTRADIOL
     Indication: Supplementation therapy
     Dates: start: 20211110
  3. ALTIFEX [Concomitant]
     Indication: Seasonal allergy
     Dates: start: 20150611
  4. ESTROGENS [Concomitant]
     Active Substance: ESTROGENS
     Indication: Supplementation therapy
  5. TRAMADOL [Concomitant]
     Active Substance: TRAMADOL\TRAMADOL HYDROCHLORIDE
     Indication: Pain
     Dates: start: 20160212
  6. HYDROXOCOBALAMIN [Concomitant]
     Active Substance: HYDROXOCOBALAMIN
     Indication: Product used for unknown indication
     Dates: start: 20201021

REACTIONS (2)
  - Visual impairment [Unknown]
  - Papilloedema [Unknown]

NARRATIVE: CASE EVENT DATE: 20240101
